FAERS Safety Report 6955483-X (Version None)
Quarter: 2010Q3

REPORT INFORMATION
  Report Type: 
  Country: None (occurrence: None)
  Receive Date: 20100830
  Receipt Date: 20100818
  Transmission Date: 20110219
  Serious: Yes (Disabling)
  Sender: FDA-Public Use
  Company Number: DE-PFIZER INC-2010103909

PATIENT
  Age: 6 Year
  Sex: Male
  Weight: 16.5 kg

DRUGS (1)
  1. SOMATROPIN [Suspect]
     Indication: SMALL FOR DATES BABY
     Dosage: 0.5 MG, 1X/DAY
     Dates: start: 20061205

REACTIONS (1)
  - TYPE 1 DIABETES MELLITUS [None]
